FAERS Safety Report 25785549 (Version 1)
Quarter: 2025Q3

REPORT INFORMATION
  Report Type: Spontaneous
  Country: US (occurrence: US)
  Receive Date: 20250910
  Receipt Date: 20250910
  Transmission Date: 20251021
  Serious: Yes (Death)
  Sender: ANI
  Company Number: US-ANIPHARMA-2025-US-041503

PATIENT
  Age: 89 Year
  Sex: Female

DRUGS (1)
  1. CORTICOTROPIN [Suspect]
     Active Substance: CORTICOTROPIN
     Indication: Pulmonary sarcoidosis
     Route: 058
     Dates: start: 20240619

REACTIONS (1)
  - Death [Fatal]

NARRATIVE: CASE EVENT DATE: 20250731
